FAERS Safety Report 13739606 (Version 2)
Quarter: 2017Q3

REPORT INFORMATION
  Report Type: Spontaneous
  Country: CH (occurrence: CH)
  Receive Date: 20170711
  Receipt Date: 20170721
  Transmission Date: 20171127
  Serious: Yes (Hospitalization)
  Sender: FDA-Public Use
  Company Number: CH-LPDUSPRD-20170650

PATIENT
  Age: 41 Year
  Sex: Female
  Weight: 54 kg

DRUGS (1)
  1. FERINJECT [Suspect]
     Active Substance: FERRIC CARBOXYMALTOSE
     Dosage: 500 MG, 2 TIMES
     Route: 041
     Dates: start: 20101209, end: 20101214

REACTIONS (4)
  - Leukopenia [Recovered/Resolved]
  - Hypochromic anaemia [Recovered/Resolved]
  - Osteosclerosis [Recovered/Resolved]
  - Hypophosphataemia [Recovered/Resolved]

NARRATIVE: CASE EVENT DATE: 20101215
